FAERS Safety Report 8004816-4 (Version None)
Quarter: 2011Q4

REPORT INFORMATION
  Report Type: 
  Country: None (occurrence: None)
  Receive Date: 20111223
  Receipt Date: 20111219
  Transmission Date: 20120403
  Serious: Yes (Hospitalization)
  Sender: FDA-Public Use
  Company Number: IT-BRISTOL-MYERS SQUIBB COMPANY-16274409

PATIENT
  Age: 84 Year
  Sex: Male

DRUGS (2)
  1. COUMADIN [Suspect]
     Indication: ATRIAL FIBRILLATION
     Dosage: 1 DOSAGE FORM = 1 UNIT
     Route: 048
     Dates: start: 20090101, end: 20110925
  2. LANOXIN [Concomitant]
     Indication: ATRIAL FIBRILLATION
     Dosage: 1DF:0.215 1 UNIT

REACTIONS (3)
  - TRANSFUSION REACTION [None]
  - MELAENA [None]
  - DUODENAL ULCER [None]
